FAERS Safety Report 9915520 (Version 1)
Quarter: 2014Q1

REPORT INFORMATION
  Report Type: Report from Study
  Country: CA (occurrence: CA)
  Receive Date: 20140221
  Receipt Date: 20140221
  Transmission Date: 20141002
  Serious: Yes (Hospitalization)
  Sender: FDA-Public Use
  Company Number: CA-BRISTOL-MYERS SQUIBB COMPANY-20195046

PATIENT
  Age: 78 Year
  Sex: Female

DRUGS (10)
  1. ORENCIA [Suspect]
     Indication: RHEUMATOID ARTHRITIS
     Dosage: 1DF=750 UNIT NOS.07FEB14 INFUSION WAS CANCELLED
     Dates: start: 20090804
  2. ACTONEL [Concomitant]
  3. CITALOPRAM [Concomitant]
  4. ATENOLOL [Concomitant]
  5. MICRO-K [Concomitant]
  6. ENTROPHEN [Concomitant]
  7. CRESTOR [Concomitant]
  8. PANTOLOC [Concomitant]
  9. ARICEPT [Concomitant]
  10. PREDNISONE [Concomitant]

REACTIONS (2)
  - Hip fracture [Unknown]
  - Fall [Unknown]
